FAERS Safety Report 13219148 (Version 2)
Quarter: 2018Q2

REPORT INFORMATION
  Report Type: Spontaneous
  Country: US (occurrence: US)
  Receive Date: 20170210
  Receipt Date: 20180606
  Transmission Date: 20180711
  Serious: No
  Sender: FDA-Public Use
  Company Number: US-TEVA-724873ACC

PATIENT
  Age: 73 Year
  Sex: Female
  Weight: 53.12 kg

DRUGS (1)
  1. ESZOPICLONE TABLETS [Suspect]
     Active Substance: ESZOPICLONE
     Indication: INSOMNIA
     Dates: start: 20161014

REACTIONS (2)
  - Drug ineffective [Unknown]
  - Sleep-related eating disorder [Unknown]
